FAERS Safety Report 19825597 (Version 1)
Quarter: 2021Q3

REPORT INFORMATION
  Report Type: Spontaneous
  Country: US (occurrence: US)
  Receive Date: 20210914
  Receipt Date: 20210914
  Transmission Date: 20211014
  Serious: Yes (Other)
  Sender: FDA-Public Use
  Company Number: None

PATIENT
  Age: 60 Year
  Sex: Female

DRUGS (4)
  1. PACLITAXEL. [Suspect]
     Active Substance: PACLITAXEL
     Indication: NEOPLASM MALIGNANT
     Route: 041
     Dates: start: 20210907, end: 20210907
  2. FAMOTIDINE 20MG IV [Concomitant]
     Dates: start: 20210907, end: 20210907
  3. NS 0.9% [Concomitant]
     Dates: start: 20210907, end: 20210907
  4. DEXAMETHASONE 10MG IV [Concomitant]
     Dates: start: 20210907, end: 20210907

REACTIONS (3)
  - Back pain [None]
  - Nausea [None]
  - Infusion related reaction [None]

NARRATIVE: CASE EVENT DATE: 20210907
